FAERS Safety Report 4354374-0 (Version None)
Quarter: 2004Q2

REPORT INFORMATION
  Report Type: 
  Country: None (occurrence: None)
  Receive Date: 20040506
  Receipt Date: 20030707
  Transmission Date: 20050107
  Serious: Yes (Other)
  Sender: FDA-Public Use
  Company Number: US-MERCK-0307USA00558

PATIENT
  Age: 41 Year
  Sex: Female

DRUGS (2)
  1. VIOXX [Suspect]
     Indication: BACK PAIN
     Route: 048
     Dates: start: 20030530, end: 20030604
  2. VIOXX [Suspect]
     Route: 048
     Dates: start: 20030601, end: 20030606

REACTIONS (9)
  - ADVERSE EVENT [None]
  - CAESAREAN SECTION [None]
  - COMPLICATIONS OF MATERNAL EXPOSURE TO THERAPEUTIC DRUGS [None]
  - DRUG EXPOSURE DURING PREGNANCY [None]
  - IMPETIGO [None]
  - OLIGOHYDRAMNIOS [None]
  - OVARIAN EPITHELIAL CANCER [None]
  - PREGNANCY [None]
  - PRESCRIBED OVERDOSE [None]
